FAERS Safety Report 10344531 (Version 2)
Quarter: 2014Q3

REPORT INFORMATION
  Report Type: Spontaneous
  Country: US (occurrence: US)
  Receive Date: 20140728
  Receipt Date: 20140916
  Transmission Date: 20150326
  Serious: Yes (Hospitalization)
  Sender: FDA-Public Use
  Company Number: 2014SP004058

PATIENT
  Age: 70 Year
  Sex: Male
  Weight: 85.37 kg

DRUGS (17)
  1. FOLINIC ACID [Suspect]
     Active Substance: LEUCOVORIN
     Indication: ADENOCARCINOMA OF COLON
     Route: 042
     Dates: start: 20131203, end: 20140602
  2. AXITINIB [Suspect]
     Active Substance: AXITINIB
     Indication: ADENOCARCINOMA OF COLON
     Route: 048
     Dates: start: 20140624, end: 20140624
  3. PLAVIX [Concomitant]
     Active Substance: CLOPIDOGREL BISULFATE
     Indication: STENT PLACEMENT
     Dates: start: 199503
  4. METOPROLOL [Concomitant]
     Active Substance: METOPROLOL
     Indication: CARDIAC DISORDER
     Dates: start: 199503
  5. ZOFRAN /00955301/ [Concomitant]
     Active Substance: ONDANSETRON HYDROCHLORIDE
     Indication: NAUSEA
     Dates: start: 201311
  6. CELEXA [Concomitant]
     Active Substance: CITALOPRAM HYDROBROMIDE
     Indication: ANXIETY
     Dates: start: 201310
  7. FLUOROURACIL. [Suspect]
     Active Substance: FLUOROURACIL
     Indication: ADENOCARCINOMA OF COLON
     Route: 040
     Dates: start: 20131203, end: 20140602
  8. BEVACIZUMAB [Suspect]
     Active Substance: BEVACIZUMAB
     Indication: ADENOCARCINOMA OF COLON
     Route: 042
     Dates: start: 20131203, end: 20140602
  9. OXALIPLATIN. [Suspect]
     Active Substance: OXALIPLATIN
     Indication: ADENOCARCINOMA OF COLON
     Route: 042
     Dates: start: 20131203, end: 20140602
  10. COMPAZINE [Concomitant]
     Active Substance: PROCHLORPERAZINE MALEATE
     Indication: NAUSEA
     Dates: start: 20131127
  11. FLOMAX [Concomitant]
     Active Substance: TAMSULOSIN HYDROCHLORIDE
     Indication: URINARY RETENTION
     Dates: start: 201212
  12. VYTORIN [Concomitant]
     Active Substance: EZETIMIBE\SIMVASTATIN
     Indication: BLOOD CHOLESTEROL INCREASED
     Dates: start: 199503
  13. ULTRAM [Concomitant]
     Active Substance: TRAMADOL HYDROCHLORIDE
     Indication: ABDOMINAL PAIN
     Dates: start: 20131127
  14. FLUOROURACIL. [Suspect]
     Active Substance: FLUOROURACIL
     Indication: ADENOCARCINOMA OF COLON
     Route: 042
     Dates: start: 20131203, end: 20140602
  15. ASA [Concomitant]
     Active Substance: ASPIRIN
     Indication: CARDIAC DISORDER
     Dates: start: 199503
  16. NEXIUM [Concomitant]
     Active Substance: ESOMEPRAZOLE MAGNESIUM
     Indication: GASTROOESOPHAGEAL REFLUX DISEASE
     Dates: start: 200106
  17. RESTORIL /00393701/ [Concomitant]
     Indication: INSOMNIA
     Dates: start: 20131127

REACTIONS (4)
  - Blood potassium decreased [Recovered/Resolved]
  - Tachycardia [Recovered/Resolved]
  - Atrial flutter [Recovered/Resolved]
  - Pancytopenia [Recovered/Resolved]

NARRATIVE: CASE EVENT DATE: 20140624
